FAERS Safety Report 7333097-X (Version None)
Quarter: 2011Q1

REPORT INFORMATION
  Report Type: 
  Country: None (occurrence: None)
  Receive Date: 20110304
  Receipt Date: 20110224
  Transmission Date: 20110831
  Serious: Yes (Hospitalization)
  Sender: FDA-Public Use
  Company Number: JP-ABBOTT-10P-087-0624228-00

PATIENT
  Sex: Female
  Weight: 39 kg

DRUGS (20)
  1. ISCOTIN [Concomitant]
     Indication: ANTIBIOTIC PROPHYLAXIS
     Route: 048
     Dates: start: 20090709
  2. FOLIC ACID [Concomitant]
     Indication: PRODUCT USED FOR UNKNOWN INDICATION
     Dates: start: 20090804
  3. FARNAZONE [Concomitant]
     Indication: RHEUMATOID ARTHRITIS
     Route: 061
     Dates: start: 20090729
  4. PREDNISOLONE [Concomitant]
     Route: 048
     Dates: start: 20091120
  5. REBAMIPIDE [Concomitant]
     Dates: start: 20091120, end: 20100401
  6. CALFINA [Concomitant]
     Route: 048
     Dates: start: 20100316
  7. HUMIRA [Suspect]
     Indication: RHEUMATOID ARTHRITIS
     Route: 058
     Dates: start: 20090801, end: 20091023
  8. REBAMIPIDE [Concomitant]
     Indication: GASTRITIS PROPHYLAXIS
     Route: 048
     Dates: start: 20090625, end: 20091119
  9. ZENOL [Concomitant]
     Indication: PRODUCT USED FOR UNKNOWN INDICATION
     Dosage: ADEQUATE DOSE
     Route: 061
     Dates: start: 20090601
  10. HUMIRA [Suspect]
     Route: 058
     Dates: start: 20091023, end: 20100120
  11. PALECS USUPITA PACKING SHEET [Concomitant]
     Indication: RHEUMATOID ARTHRITIS
     Dosage: ADEQUATE DOSE
     Route: 061
  12. PYDOXAL [Concomitant]
     Indication: VITAMIN B COMPLEX DEFICIENCY
     Route: 048
     Dates: start: 20090709
  13. MELOXICAM [Concomitant]
     Indication: RHEUMATOID ARTHRITIS
     Route: 048
     Dates: start: 20091219
  14. VOGLIBOSE [Concomitant]
     Indication: HYPERGLYCAEMIA
     Route: 048
     Dates: start: 20091120
  15. METHOTREXATE [Concomitant]
     Dates: start: 20090927
  16. PREDNISOLONE [Concomitant]
     Indication: RHEUMATOID ARTHRITIS
     Route: 048
     Dates: start: 20090704, end: 20091119
  17. PREDNISOLONE [Concomitant]
     Route: 048
     Dates: start: 20091120
  18. CALFINA [Concomitant]
     Indication: OSTEOPOROSIS PROPHYLAXIS
     Route: 048
     Dates: start: 20090704, end: 20100315
  19. HUMIRA [Suspect]
     Dates: start: 20100303, end: 20100330
  20. METHOTREXATE [Concomitant]
     Indication: PRODUCT USED FOR UNKNOWN INDICATION
     Dates: start: 20090802, end: 20090926

REACTIONS (1)
  - C-REACTIVE PROTEIN INCREASED [None]
